FAERS Safety Report 9699372 (Version 2)
Quarter: 2013Q4

REPORT INFORMATION
  Report Type: Spontaneous
  Country: US (occurrence: US)
  Receive Date: 20131120
  Receipt Date: 20131120
  Transmission Date: 20140711
  Serious: No
  Sender: FDA-Public Use
  Company Number: US-TEVA-362790USA

PATIENT
  Age: 26 Year
  Sex: Female
  Weight: 61.74 kg

DRUGS (1)
  1. PARAGARD 380A [Suspect]
     Indication: CONTRACEPTION
     Route: 015
     Dates: start: 20120411, end: 20121003

REACTIONS (6)
  - Pelvic pain [Unknown]
  - Muscle spasms [Recovered/Resolved]
  - Menorrhagia [Unknown]
  - Menorrhagia [Unknown]
  - Metrorrhagia [Recovered/Resolved]
  - Vaginal haemorrhage [Recovered/Resolved]
